FAERS Safety Report 22356068 (Version 6)
Quarter: 2024Q2

REPORT INFORMATION
  Report Type: Report from Study
  Country: US (occurrence: US)
  Receive Date: 20230523
  Receipt Date: 20240511
  Transmission Date: 20240716
  Serious: No
  Sender: FDA-Public Use
  Company Number: US-002147023-NVSC2023US111748

PATIENT
  Sex: Female
  Weight: 63.5 kg

DRUGS (1)
  1. KESIMPTA [Suspect]
     Active Substance: OFATUMUMAB
     Indication: Multiple sclerosis
     Dosage: UNK UNK, QMO
     Route: 058
     Dates: start: 20220801, end: 20231001

REACTIONS (13)
  - Adverse drug reaction [Unknown]
  - Anal incontinence [Unknown]
  - Flatulence [Unknown]
  - Headache [Recovered/Resolved]
  - Diarrhoea [Unknown]
  - Nausea [Unknown]
  - Inappropriate schedule of product administration [Unknown]
  - Pain in extremity [Unknown]
  - Influenza like illness [Unknown]
  - Pain [Unknown]
  - Mobility decreased [Unknown]
  - Fatigue [Unknown]
  - Brain fog [Unknown]
